FAERS Safety Report 5388710-3 (Version None)
Quarter: 2007Q3

REPORT INFORMATION
  Report Type: 
  Country: None (occurrence: None)
  Receive Date: 20070716
  Receipt Date: 20070711
  Transmission Date: 20080115
  Serious: Yes (Other)
  Sender: FDA-Public Use
  Company Number: US-MERCK-0707USA01876

PATIENT

DRUGS (3)
  1. COZAAR [Suspect]
     Route: 048
  2. BENICAR [Suspect]
     Route: 065
  3. MICARDIS [Suspect]
     Route: 065

REACTIONS (1)
  - CARDIAC FAILURE [None]
